FAERS Safety Report 8019389-X (Version None)
Quarter: 2012Q1

REPORT INFORMATION
  Report Type: 
  Country: None (occurrence: None)
  Receive Date: 20120103
  Receipt Date: 20111226
  Transmission Date: 20120608
  Serious: Yes (Other)
  Sender: FDA-Public Use
  Company Number: PHHY2011CN113330

PATIENT
  Age: 58 Year
  Sex: Female

DRUGS (8)
  1. DIOVAN [Suspect]
     Indication: HYPERTENSION
     Dosage: 80 MG IN THE MORNING INITIALLY
     Dates: start: 20090101, end: 20111223
  2. NIFEDIPINE [Concomitant]
     Indication: HYPERTENSION
  3. DIOVAN [Suspect]
     Dosage: 80 MG IN THE NIGHT
     Dates: start: 20090101, end: 20111223
  4. ADALAT [Concomitant]
     Dosage: 30 MG, IN THE MORNING
  5. NIFEDIPINE [Concomitant]
     Indication: CORONARY ARTERY DISEASE
  6. ESTAZOLAM [Concomitant]
     Indication: INSOMNIA
     Dosage: UNK
     Dates: start: 20090101
  7. METOPROLOL TARTRATE [Concomitant]
     Dosage: UNK
     Dates: start: 20111101
  8. ISOSORBIDE MONONITRATE [Concomitant]
     Indication: CORONARY ARTERY DISEASE
     Dosage: UNK
     Dates: start: 20090101

REACTIONS (5)
  - MUSCULOSKELETAL PAIN [None]
  - INSOMNIA [None]
  - ANGINA PECTORIS [None]
  - CHEST DISCOMFORT [None]
  - HYPOAESTHESIA [None]
